FAERS Safety Report 5243684-0 (Version None)
Quarter: 2007Q1

REPORT INFORMATION
  Report Type: 
  Country: None (occurrence: None)
  Receive Date: 20070222
  Receipt Date: 20070215
  Transmission Date: 20070707
  Serious: Yes (Other)
  Sender: FDA-Public Use
  Company Number: HQWYE852215FEB07

PATIENT
  Sex: Female

DRUGS (1)
  1. SUPRAX [Suspect]
     Indication: ACUTE TONSILLITIS
     Dosage: 400MG; UNKNOWN FREQUENCY
     Dates: start: 20061205, end: 20061215

REACTIONS (1)
  - DIARRHOEA HAEMORRHAGIC [None]
